FAERS Safety Report 25085328 (Version 1)
Quarter: 2025Q1

REPORT INFORMATION
  Report Type: Spontaneous
  Country: JP (occurrence: JP)
  Receive Date: 20250317
  Receipt Date: 20250317
  Transmission Date: 20250409
  Serious: Yes (Other)
  Sender: SANOFI AVENTIS
  Company Number: JP-MEIJISEIKA-202501500_P_1

PATIENT
  Age: 14 Year
  Sex: Male

DRUGS (3)
  1. REZUROCK [Suspect]
     Active Substance: BELUMOSUDIL
     Indication: Chronic graft versus host disease
     Dosage: 200 MG, QD
     Route: 048
     Dates: start: 20250214
  2. AMBISOME [Suspect]
     Active Substance: AMPHOTERICIN B
     Indication: Fungal infection
     Route: 065
  3. POSACONAZOLE [Concomitant]
     Active Substance: POSACONAZOLE
     Route: 065

REACTIONS (2)
  - Renal impairment [Unknown]
  - Headache [Recovering/Resolving]

NARRATIVE: CASE EVENT DATE: 20250303
